FAERS Safety Report 7632819-8 (Version None)
Quarter: 2011Q3

REPORT INFORMATION
  Report Type: 
  Country: None (occurrence: None)
  Receive Date: 20110725
  Receipt Date: 20110712
  Transmission Date: 20111222
  Serious: Yes (Hospitalization, Other)
  Sender: FDA-Public Use
  Company Number: US-BAYER-2011-010475

PATIENT
  Age: 23 Year
  Sex: Female
  Weight: 76.19 kg

DRUGS (1)
  1. MIRENA [Suspect]
     Indication: CONTRACEPTION
     Dosage: 20 ?G, CONT
     Route: 015
     Dates: start: 20090618, end: 20101229

REACTIONS (15)
  - PRODUCT SHAPE ISSUE [None]
  - PELVIC PAIN [None]
  - VAGINAL HAEMORRHAGE [None]
  - GASTRIC DISORDER [None]
  - PROCEDURAL PAIN [None]
  - ACNE [None]
  - DIZZINESS [None]
  - ABDOMINAL PAIN [None]
  - NAUSEA [None]
  - BACK PAIN [None]
  - CHILLS [None]
  - HYPERHIDROSIS [None]
  - SYNCOPE [None]
  - INSOMNIA [None]
  - HAEMORRHAGIC OVARIAN CYST [None]
